FAERS Safety Report 24959690 (Version 1)
Quarter: 2025Q1

REPORT INFORMATION
  Report Type: Spontaneous
  Country: US (occurrence: US)
  Receive Date: 20250212
  Receipt Date: 20250212
  Transmission Date: 20250408
  Serious: No
  Sender: BAUSCH AND LOMB
  Company Number: US-BAUSCHBL-2025BNL001994

PATIENT
  Sex: Female

DRUGS (1)
  1. XIIDRA [Suspect]
     Active Substance: LIFITEGRAST
     Indication: Dry eye
     Dosage: STOPPED USING THE DROPS AFTER THE FIRST DOSE
     Route: 047
     Dates: start: 20250129, end: 20250129

REACTIONS (14)
  - Taste disorder [Unknown]
  - Visual impairment [Recovered/Resolved]
  - Hyperaemia [Recovered/Resolved]
  - Conjunctivitis [Recovered/Resolved]
  - Eye inflammation [Recovered/Resolved]
  - Rebound effect [Unknown]
  - Ocular hyperaemia [Not Recovered/Not Resolved]
  - Eye pain [Recovered/Resolved]
  - Lacrimation increased [Recovered/Resolved]
  - Eye irritation [Not Recovered/Not Resolved]
  - Eye pruritus [Recovered/Resolved]
  - Vision blurred [Recovered/Resolved]
  - Eye swelling [Recovered/Resolved]
  - Product after taste [Unknown]

NARRATIVE: CASE EVENT DATE: 20250101
